FAERS Safety Report 15781896 (Version 2)
Quarter: 2019Q1

REPORT INFORMATION
  Report Type: Spontaneous
  Country: GB (occurrence: GB)
  Receive Date: 20190102
  Receipt Date: 20190114
  Transmission Date: 20190417
  Serious: Yes (Other)
  Sender: FDA-Public Use
  Company Number: GB-PFIZER INC-2018533420

PATIENT
  Age: 60 Year
  Sex: Male

DRUGS (2)
  1. CYPROTERONE ACETATE [Suspect]
     Active Substance: CYPROTERONE ACETATE
     Dosage: UNK
     Route: 048
     Dates: start: 1982, end: 2017
  2. PREMARIN [Suspect]
     Active Substance: ESTROGENS, CONJUGATED
     Indication: TRANSGENDER HORMONAL THERAPY
     Dosage: UNK
     Dates: start: 1982, end: 2017

REACTIONS (2)
  - Product use issue [Unknown]
  - Meningioma [Recovered/Resolved]

NARRATIVE: CASE EVENT DATE: 1982
